FAERS Safety Report 9728379 (Version 1)
Quarter: 2013Q4

REPORT INFORMATION
  Report Type: Spontaneous
  Country: US (occurrence: None)
  Receive Date: 20131203
  Receipt Date: 20131203
  Transmission Date: 20140711
  Serious: Yes (Life-Threatening, Hospitalization)
  Sender: FDA-Public Use
  Company Number: None

PATIENT
  Age: 74 Year
  Sex: Female

DRUGS (2)
  1. ALBUTEROL SULFATE INHALATION SOLUTION [Suspect]
     Indication: CHRONIC OBSTRUCTIVE PULMONARY DISEASE
     Dosage: 1 VIAL 3X DAILY INHALATION VIA NEBULIZER
     Dates: start: 20131003, end: 20131018
  2. ALBUTEROL SULFATE INHALATION SOLUTION [Suspect]
     Indication: EMPHYSEMA
     Dosage: 1 VIAL 3X DAILY INHALATION VIA NEBULIZER
     Dates: start: 20131003, end: 20131018

REACTIONS (5)
  - Dyspnoea [None]
  - Chest pain [None]
  - Dizziness [None]
  - Asthenia [None]
  - Malaise [None]
